FAERS Safety Report 25579502 (Version 2)
Quarter: 2025Q3

REPORT INFORMATION
  Report Type: Spontaneous
  Country: US (occurrence: US)
  Receive Date: 20250718
  Receipt Date: 20250908
  Transmission Date: 20251021
  Serious: No
  Sender: BAUSCH AND LOMB
  Company Number: US-BAUSCH-BH-2025-014750

PATIENT
  Age: 71 Year
  Sex: Female

DRUGS (2)
  1. ARESTIN [Suspect]
     Active Substance: MINOCYCLINE HYDROCHLORIDE
     Indication: Periodontal disease
     Route: 061
  2. ARESTIN [Suspect]
     Active Substance: MINOCYCLINE HYDROCHLORIDE
     Route: 061
     Dates: start: 20250708

REACTIONS (7)
  - Swelling [Unknown]
  - Erythema [Unknown]
  - Application site irritation [Unknown]
  - Administration site inflammation [Unknown]
  - Oral discomfort [Unknown]
  - Application site hypersensitivity [Unknown]
  - Product quality issue [Unknown]

NARRATIVE: CASE EVENT DATE: 20250701
